FAERS Safety Report 8008080-1 (Version None)
Quarter: 2011Q4

REPORT INFORMATION
  Report Type: 
  Country: None (occurrence: None)
  Receive Date: 20111227
  Receipt Date: 20111221
  Transmission Date: 20120403
  Serious: Yes (Hospitalization, Other)
  Sender: FDA-Public Use
  Company Number: PHHY2011BR112125

PATIENT
  Sex: Male

DRUGS (2)
  1. FORMOTEROL FUMARATE [Suspect]
  2. SPIRIVA [Concomitant]

REACTIONS (1)
  - LUNG DISORDER [None]
